FAERS Safety Report 9877361 (Version 1)
Quarter: 2014Q1

REPORT INFORMATION
  Report Type: Report from Study
  Country: AT (occurrence: AT)
  Receive Date: 20140206
  Receipt Date: 20140206
  Transmission Date: 20141002
  Serious: Yes (Hospitalization)
  Sender: FDA-Public Use
  Company Number: AT-JNJFOC-20140200675

PATIENT
  Age: 59 Year
  Sex: Female

DRUGS (14)
  1. DOXORUBICIN [Suspect]
     Indication: PLASMA CELL MYELOMA
     Route: 042
     Dates: start: 20121002, end: 20121012
  2. DOXORUBICIN [Suspect]
     Indication: PLASMA CELL MYELOMA
     Route: 042
     Dates: start: 20121210, end: 20121220
  3. DOXORUBICIN [Suspect]
     Indication: PLASMA CELL MYELOMA
     Route: 042
     Dates: start: 20121029, end: 20121108
  4. DOXORUBICIN [Suspect]
     Indication: PLASMA CELL MYELOMA
     Route: 042
     Dates: start: 20121119, end: 20121129
  5. VELCADE [Suspect]
     Indication: PLASMA CELL MYELOMA
     Route: 065
     Dates: start: 20121210, end: 20121220
  6. VELCADE [Suspect]
     Indication: PLASMA CELL MYELOMA
     Route: 065
     Dates: start: 20121029, end: 20121108
  7. VELCADE [Suspect]
     Indication: PLASMA CELL MYELOMA
     Route: 065
     Dates: start: 20121119, end: 20121129
  8. VELCADE [Suspect]
     Indication: PLASMA CELL MYELOMA
     Route: 065
     Dates: start: 20121002, end: 20121012
  9. DEXAMETHASONE [Suspect]
     Indication: PLASMA CELL MYELOMA
     Route: 065
     Dates: start: 20121002, end: 20121012
  10. DEXAMETHASONE [Suspect]
     Indication: PLASMA CELL MYELOMA
     Route: 065
     Dates: start: 20121029, end: 20121108
  11. DEXAMETHASONE [Suspect]
     Indication: PLASMA CELL MYELOMA
     Route: 065
     Dates: start: 20121119, end: 20121129
  12. DEXAMETHASONE [Suspect]
     Indication: PLASMA CELL MYELOMA
     Route: 065
     Dates: start: 20121210, end: 20121220
  13. CYCLOPHOSPHAMIDE [Suspect]
     Indication: PLASMA CELL MYELOMA
     Route: 065
     Dates: start: 20130116, end: 20130116
  14. MELPHALAN [Suspect]
     Indication: PLASMA CELL MYELOMA
     Route: 065
     Dates: start: 20130319, end: 20130319

REACTIONS (3)
  - Pain in extremity [Unknown]
  - Cauda equina syndrome [Unknown]
  - Plasma cell myeloma [Unknown]
